FAERS Safety Report 6296358-1 (Version None)
Quarter: 2009Q3

REPORT INFORMATION
  Report Type: 
  Country: None (occurrence: None)
  Receive Date: 20090804
  Receipt Date: 20090730
  Transmission Date: 20100115
  Serious: Yes (Death)
  Sender: FDA-Public Use
  Company Number: PHHY2009BR31805

PATIENT
  Sex: Female

DRUGS (2)
  1. RASILEZ [Suspect]
     Dosage: 300 MG, UNK
  2. DIOVAN AMLO FIX [Suspect]
     Dosage: 160/10MG

REACTIONS (3)
  - ANGINA PECTORIS [None]
  - CHEST PAIN [None]
  - INFARCTION [None]
